FAERS Safety Report 7648302-X (Version None)
Quarter: 2011Q3

REPORT INFORMATION
  Report Type: 
  Country: None (occurrence: None)
  Receive Date: 20110801
  Receipt Date: 20110728
  Transmission Date: 20111222
  Serious: Yes (Other)
  Sender: FDA-Public Use
  Company Number: JP-PFIZER INC-2011154942

PATIENT
  Age: 70 Year
  Sex: Male

DRUGS (18)
  1. AMARYL [Concomitant]
  2. CANDESARTAN CILEXETIL [Concomitant]
  3. LIPIDIL [Concomitant]
  4. LYRICA [Suspect]
     Dosage: 300 MG/DAY
     Route: 048
     Dates: start: 20110610, end: 20110613
  5. LYRICA [Suspect]
     Dosage: 225 MG/DAY
     Route: 048
     Dates: start: 20110614, end: 20110627
  6. NEUROTROPIN [Concomitant]
  7. MYONAL [Concomitant]
  8. METOPROLOL TARTRATE [Concomitant]
  9. OXYCODONE [Concomitant]
     Dosage: UNK
  10. DOXAZOSIN MESYLATE [Concomitant]
  11. LOXONIN [Concomitant]
  12. MAGNESIUM OXIDE [Concomitant]
  13. ACTOS [Concomitant]
  14. ALOSITOL [Concomitant]
  15. PANTETHINE [Concomitant]
  16. LYRICA [Suspect]
     Indication: NEURALGIA
     Dosage: 150 MG/DAY
     Route: 048
     Dates: start: 20110606, end: 20110609
  17. MUCOSTA [Concomitant]
  18. SENNOSIDE A [Concomitant]

REACTIONS (4)
  - SOMNOLENCE [None]
  - NAUSEA [None]
  - BLOOD CREATININE INCREASED [None]
  - BLOOD UREA INCREASED [None]
